FAERS Safety Report 14980576 (Version 1)
Quarter: 2018Q2

REPORT INFORMATION
  Report Type: Report from Study
  Country: US (occurrence: US)
  Receive Date: 20180606
  Receipt Date: 20180606
  Transmission Date: 20180711
  Serious: Yes (Hospitalization)
  Sender: FDA-Public Use
  Company Number: PHHO2018US006722

PATIENT
  Age: 57 Year
  Sex: Male
  Weight: 97.1 kg

DRUGS (5)
  1. HEPARIN [Concomitant]
     Active Substance: HEPARIN SODIUM
     Indication: PROPHYLAXIS
     Dosage: 500 U, TID
     Route: 058
     Dates: start: 20170507
  2. TACROLIMUS. [Suspect]
     Active Substance: TACROLIMUS
     Indication: LIVER TRANSPLANT
     Dosage: 8 MG, BID
     Route: 048
     Dates: start: 20170507
  3. AZATHIOPRINE. [Concomitant]
     Active Substance: AZATHIOPRINE
     Indication: PRODUCT USED FOR UNKNOWN INDICATION
     Dosage: 100 MG, QD
     Route: 048
     Dates: start: 20170507, end: 20170810
  4. INSULIN ASPART [Concomitant]
     Active Substance: INSULIN ASPART
     Indication: HYPERGLYCAEMIA
     Dosage: 0 -12 U, TID
     Route: 058
     Dates: start: 20170509
  5. PREDNISONE. [Concomitant]
     Active Substance: PREDNISONE
     Indication: TRANSPLANT REJECTION
     Dosage: 20 MG, QD
     Route: 048
     Dates: start: 20170507, end: 20170606

REACTIONS (1)
  - Incarcerated umbilical hernia [Recovered/Resolved]

NARRATIVE: CASE EVENT DATE: 20170823
